FAERS Safety Report 9308338 (Version 1)
Quarter: 2013Q2

REPORT INFORMATION
  Report Type: Spontaneous
  Country: US (occurrence: US)
  Receive Date: 20130524
  Receipt Date: 20130524
  Transmission Date: 20140414
  Serious: No
  Sender: FDA-Public Use
  Company Number: US-PFIZER INC-2013160140

PATIENT
  Age: 47 Year
  Sex: Female
  Weight: 54.42 kg

DRUGS (2)
  1. LYRICA [Suspect]
     Indication: NEURALGIA
     Dosage: 150 MG, 1X/DAY
     Route: 048
     Dates: start: 201301
  2. CYMBALTA [Concomitant]
     Dosage: UNK

REACTIONS (3)
  - Muscle atrophy [Unknown]
  - Hypotonia [Unknown]
  - Skin atrophy [Unknown]
